FAERS Safety Report 20107154 (Version 2)
Quarter: 2021Q4

REPORT INFORMATION
  Report Type: Spontaneous
  Country: US (occurrence: US)
  Receive Date: 20211124
  Receipt Date: 20211126
  Transmission Date: 20220303
  Serious: No
  Sender: FDA-Public Use
  Company Number: US-NOVARTISTESTPH-NVSC2021US268282

PATIENT
  Age: 5 Year
  Sex: Male
  Weight: 16.327 kg

DRUGS (1)
  1. ILARIS [Suspect]
     Active Substance: CANAKINUMAB
     Indication: Pyrexia
     Dosage: 60 MG, Q4W
     Route: 058
     Dates: start: 20211111

REACTIONS (5)
  - Illness [Unknown]
  - Nausea [Unknown]
  - Diarrhoea [Unknown]
  - Vomiting [Unknown]
  - Arthralgia [Unknown]

NARRATIVE: CASE EVENT DATE: 20211112
